FAERS Safety Report 8654359 (Version 2)
Quarter: 2013Q4

REPORT INFORMATION
  Report Type: Spontaneous
  Country: US (occurrence: US)
  Receive Date: 20120709
  Receipt Date: 20131101
  Transmission Date: 20140711
  Serious: Yes (Life-Threatening, Other)
  Sender: FDA-Public Use
  Company Number: US-MSD-1207USA00102

PATIENT
  Age: 52 Year
  Sex: Female

DRUGS (3)
  1. IVEMEND [Suspect]
     Indication: PROPHYLAXIS OF NAUSEA AND VOMITING
     Dosage: 150 MG, UNK
     Route: 042
     Dates: start: 20120620
  2. ALOXI [Concomitant]
     Dosage: 0.25 MG, UNK
     Route: 042
  3. DEXAMETHASONE [Concomitant]
     Dosage: 10 MG, UNK

REACTIONS (1)
  - Anaphylactic reaction [Recovering/Resolving]
